FAERS Safety Report 10530747 (Version 1)
Quarter: 2014Q4

REPORT INFORMATION
  Report Type: Spontaneous
  Country: GB (occurrence: None)
  Receive Date: 20141017
  Receipt Date: 20141017
  Transmission Date: 20150528
  Serious: Yes (Life-Threatening)
  Sender: FDA-Public Use
  Company Number: FK201404034

PATIENT
  Age: 73 Year
  Sex: Female

DRUGS (2)
  1. VALPROATE [Suspect]
     Active Substance: VALPROATE SODIUM
     Indication: SEIZURE
  2. VEMURAFENIB [Suspect]
     Active Substance: VEMURAFENIB
     Indication: PRODUCT USED FOR UNKNOWN INDICATION

REACTIONS (5)
  - Melaena [None]
  - Pneumonia [None]
  - Renal failure [None]
  - Toxic epidermal necrolysis [None]
  - Multi-organ failure [None]
